FAERS Safety Report 15062083 (Version 1)
Quarter: 2018Q2

REPORT INFORMATION
  Report Type: Report from Study
  Country: None (occurrence: CA)
  Receive Date: 20180625
  Receipt Date: 20180625
  Transmission Date: 20180711
  Serious: Yes (Hospitalization)
  Sender: FDA-Public Use
  Company Number: CA-ABBVIE-18K-028-2394787-00

PATIENT
  Sex: Male

DRUGS (1)
  1. VENETOCLAX. [Suspect]
     Active Substance: VENETOCLAX
     Indication: RICHTER^S SYNDROME
     Route: 048
     Dates: start: 20171123, end: 2018

REACTIONS (1)
  - Palliative care [Not Recovered/Not Resolved]

NARRATIVE: CASE EVENT DATE: 2018
